FAERS Safety Report 4798583-5 (Version None)
Quarter: 2005Q4

REPORT INFORMATION
  Report Type: 
  Country: None (occurrence: None)
  Receive Date: 20051014
  Receipt Date: 20051006
  Transmission Date: 20060501
  Serious: Yes (Other)
  Sender: FDA-Public Use
  Company Number: US-MERCK-0510USA05821

PATIENT
  Age: 70 Year
  Sex: Male

DRUGS (3)
  1. VIOXX [Suspect]
     Indication: BACK DISORDER
     Route: 048
     Dates: start: 20020101, end: 20031009
  2. VIOXX [Suspect]
     Route: 048
  3. BEXTRA [Suspect]
     Indication: BACK DISORDER
     Route: 065

REACTIONS (1)
  - MYOCARDIAL INFARCTION [None]
